FAERS Safety Report 15153915 (Version 10)
Quarter: 2019Q2

REPORT INFORMATION
  Report Type: Spontaneous
  Country: US (occurrence: US)
  Receive Date: 20180717
  Receipt Date: 20190620
  Transmission Date: 20190711
  Serious: Yes (Hospitalization, Other)
  Sender: FDA-Public Use
  Company Number: US-PFIZER INC-2017539056

PATIENT
  Age: 76 Year
  Sex: Female
  Weight: 43 kg

DRUGS (5)
  1. XELJANZ XR [Suspect]
     Active Substance: TOFACITINIB CITRATE
     Dosage: 11 MG, DAILY
     Route: 048
     Dates: start: 2018
  2. ENBREL [Suspect]
     Active Substance: ETANERCEPT
     Dosage: 0.98 ML, WEEKLY (0.98 ML (50 INJECT I MILILITER MG/ML)
     Route: 058
     Dates: start: 20180122, end: 201806
  3. LEFLUNOMIDE. [Concomitant]
     Active Substance: LEFLUNOMIDE
     Indication: SKIN EXFOLIATION
     Dosage: UNK
  4. ENBREL [Suspect]
     Active Substance: ETANERCEPT
     Indication: RHEUMATOID ARTHRITIS
     Dosage: 50 MG, WEEKLY
     Route: 030
     Dates: start: 201801
  5. ENBREL [Suspect]
     Active Substance: ETANERCEPT
     Dosage: 50 MG/ML, WEEKLY (ONCE A WEEK)
     Dates: start: 201805

REACTIONS (15)
  - Tumour marker increased [Recovered/Resolved]
  - Hyperplasia [Not Recovered/Not Resolved]
  - Lupus-like syndrome [Recovered/Resolved]
  - Joint lock [Unknown]
  - Pruritus [Recovered/Resolved]
  - Alopecia [Not Recovered/Not Resolved]
  - Bronchitis [Recovered/Resolved]
  - Product use issue [Unknown]
  - Weight decreased [Not Recovered/Not Resolved]
  - Drug ineffective [Unknown]
  - Butterfly rash [Recovered/Resolved]
  - Breast calcifications [Recovered/Resolved]
  - Pelvic pain [Recovered/Resolved]
  - Arthralgia [Unknown]
  - C-reactive protein abnormal [Recovered/Resolved]

NARRATIVE: CASE EVENT DATE: 2018
